FAERS Safety Report 16578746 (Version 5)
Quarter: 2022Q4

REPORT INFORMATION
  Report Type: Report from Study
  Country: US (occurrence: None)
  Receive Date: 20190716
  Receipt Date: 20221031
  Transmission Date: 20230112
  Serious: Yes (Hospitalization)
  Sender: FDA-Public Use
  Company Number: US-EISAI MEDICAL RESEARCH-EC-2017-030131

PATIENT
  Age: 64 Year
  Sex: Male

DRUGS (5)
  1. LENVIMA [Suspect]
     Active Substance: LENVATINIB
     Indication: Renal cancer
     Route: 048
     Dates: start: 20170726, end: 201907
  2. LENVIMA [Suspect]
     Active Substance: LENVATINIB
     Route: 048
     Dates: start: 2019, end: 201912
  3. LENVIMA [Suspect]
     Active Substance: LENVATINIB
     Route: 048
     Dates: end: 202007
  4. LENVIMA [Suspect]
     Active Substance: LENVATINIB
     Route: 048
     Dates: end: 202210
  5. AFINITOR [Concomitant]
     Active Substance: EVEROLIMUS
     Indication: Renal cancer
     Route: 048
     Dates: start: 20170817, end: 202007

REACTIONS (11)
  - Impaired healing [Not Recovered/Not Resolved]
  - Localised infection [Not Recovered/Not Resolved]
  - Malaise [Not Recovered/Not Resolved]
  - Rash [Not Recovered/Not Resolved]
  - Food intolerance [Not Recovered/Not Resolved]
  - Wound [Not Recovered/Not Resolved]
  - Onychoclasis [Not Recovered/Not Resolved]
  - Diarrhoea [Unknown]
  - Renal impairment [Unknown]
  - Hypotension [Unknown]
  - Dizziness [Unknown]

NARRATIVE: CASE EVENT DATE: 20170101
